FAERS Safety Report 7254884-2 (Version None)
Quarter: 2011Q1

REPORT INFORMATION
  Report Type: 
  Country: None (occurrence: None)
  Receive Date: 20110129
  Receipt Date: 20100319
  Transmission Date: 20110831
  Serious: No
  Sender: FDA-Public Use
  Company Number: US-ABBOTT-10P-163-0633540-00

PATIENT
  Sex: Female

DRUGS (2)
  1. HUMIRA [Suspect]
     Indication: RHEUMATOID ARTHRITIS
     Dates: start: 20091201, end: 20100226
  2. METHOTREXATE [Concomitant]
     Indication: RHEUMATOID ARTHRITIS

REACTIONS (8)
  - NASAL CONGESTION [None]
  - OEDEMA PERIPHERAL [None]
  - MUSCULOSKELETAL DISORDER [None]
  - COUGH [None]
  - HYPOAESTHESIA [None]
  - PAIN IN EXTREMITY [None]
  - INJECTION SITE PAIN [None]
  - ARTHRITIS [None]
